FAERS Safety Report 21335408 (Version 5)
Quarter: 2022Q4

REPORT INFORMATION
  Report Type: Spontaneous
  Country: US (occurrence: US)
  Receive Date: 20220915
  Receipt Date: 20221123
  Transmission Date: 20230113
  Serious: No
  Sender: FDA-Public Use
  Company Number: US-UNITED THERAPEUTICS-UNT-2022-020889

PATIENT
  Sex: Female
  Weight: 57.596 kg

DRUGS (6)
  1. REMODULIN [Suspect]
     Active Substance: TREPROSTINIL
     Indication: Pulmonary arterial hypertension
     Dosage: UNK, CONTINUING
     Route: 058
     Dates: start: 20220608, end: 202209
  2. REMODULIN [Suspect]
     Active Substance: TREPROSTINIL
     Dosage: 0.090 ?G/KG, CONTINUING
     Route: 058
     Dates: start: 2022
  3. OXYGEN [Suspect]
     Active Substance: OXYGEN
     Indication: Dyspnoea
     Dosage: UNK
  4. OXYGEN [Suspect]
     Active Substance: OXYGEN
     Dosage: 3 L/MIN
  5. TADALAFIL [Concomitant]
     Active Substance: TADALAFIL
     Indication: Product used for unknown indication
     Dosage: UNK
     Route: 065
  6. AMBRISENTAN [Concomitant]
     Active Substance: AMBRISENTAN
     Indication: Product used for unknown indication
     Dosage: UNK
     Route: 065

REACTIONS (6)
  - Product leakage [Unknown]
  - Device occlusion [Recovered/Resolved]
  - Dyspnoea [Unknown]
  - Therapy non-responder [Unknown]
  - Infusion site pain [Unknown]
  - Feeling abnormal [Unknown]

NARRATIVE: CASE EVENT DATE: 20220101
